FAERS Safety Report 8585138-X (Version None)
Quarter: 2012Q3

REPORT INFORMATION
  Report Type: 
  Country: None (occurrence: None)
  Receive Date: 20120810
  Receipt Date: 20120806
  Transmission Date: 20120928
  Serious: Yes (Hospitalization, Other)
  Sender: FDA-Public Use
  Company Number: PHHY2011VE113839

PATIENT
  Sex: Female

DRUGS (9)
  1. COZAAR [Concomitant]
     Indication: HYPERTENSION
     Dosage: 50 MG, QD
     Route: 048
  2. ZOLEDRONOC ACID [Suspect]
     Dosage: 5 MG, ONCE A YEAR
     Route: 042
     Dates: start: 20120301
  3. LIPITOR [Concomitant]
     Dosage: UNK UKN, QD
     Route: 048
  4. BISOPROLOL FUMARATE [Concomitant]
  5. METFORMIN HCL [Concomitant]
     Dosage: 1 DF (500 MG/50 MG), QD
     Route: 048
  6. ZOLEDRONOC ACID [Suspect]
     Indication: OSTEOPOROSIS
     Dosage: 5 MG, ONCE A YEAR
     Route: 042
     Dates: start: 20100801
  7. INDAPAMIDE [Concomitant]
     Indication: HYPERTENSION
     Dosage: 2.5 MG, QD
     Route: 048
  8. ENICAR [Concomitant]
     Dosage: UNK UKN, UNK
  9. BENICAR [Concomitant]
     Dosage: UNK UKN, UNK

REACTIONS (10)
  - ANGINA UNSTABLE [None]
  - BLOOD GLUCOSE ABNORMAL [None]
  - PAIN [None]
  - TENSION [None]
  - ARTHRALGIA [None]
  - VIITH NERVE PARALYSIS [None]
  - PAIN IN EXTREMITY [None]
  - CHEST PAIN [None]
  - BONE PAIN [None]
  - OEDEMA PERIPHERAL [None]
